FAERS Safety Report 22376806 (Version 1)
Quarter: 2023Q2

REPORT INFORMATION
  Report Type: Report from Study
  Country: MX (occurrence: MX)
  Receive Date: 20230528
  Receipt Date: 20230528
  Transmission Date: 20230722
  Serious: Yes (Other)
  Sender: FDA-Public Use
  Company Number: MX-ABBOTT-2023A-1363524

PATIENT
  Sex: Female

DRUGS (6)
  1. EPIVAL [Suspect]
     Active Substance: DIVALPROEX SODIUM
     Indication: Epilepsy
     Dosage: CURRENT DOSE IS 2 TABLETS IN THE MORNING, 1 IN THE AFTERNOON AND 1 AT NIGHT. DAILY DOSE: 2000 MG
     Route: 048
  2. EPIVAL [Suspect]
     Active Substance: DIVALPROEX SODIUM
     Indication: Epilepsy
     Dosage: TIME INTERVAL: 0.33333333 DAYS: 3 TABLETS PER DAY. DAILY DOSE: 1500 MG
     Route: 048
     Dates: start: 2016
  3. EPIVAL [Suspect]
     Active Substance: DIVALPROEX SODIUM
     Indication: Epilepsy
     Dosage: DAILY DOSE: 500 MG
     Route: 048
  4. EPIVAL [Suspect]
     Active Substance: DIVALPROEX SODIUM
     Indication: Epilepsy
     Dosage: ONE MORE TABLET OF EPIVAL ER ONLY ON THOSE OCCASIONS/WHEN SHE FELT A CRISIS WAS COMING
     Route: 048
  5. EPIVAL [Suspect]
     Active Substance: DIVALPROEX SODIUM
     Indication: Epilepsy
     Dosage: 2 TABLETS PER DAY. DAILY DOSE: 1000 MG
     Route: 048
  6. DIAZEPAM [Concomitant]
     Active Substance: DIAZEPAM
     Indication: Product used for unknown indication
     Route: 030

REACTIONS (15)
  - Petit mal epilepsy [Unknown]
  - Somnolence [Unknown]
  - Seizure [Recovered/Resolved]
  - Seizure [Unknown]
  - Alopecia [Not Recovered/Not Resolved]
  - Drug ineffective [Unknown]
  - Anticonvulsant drug level decreased [Unknown]
  - Generalised tonic-clonic seizure [Unknown]
  - Tremor [Unknown]
  - Petit mal epilepsy [Unknown]
  - Contraindicated product administered [Unknown]
  - Fatigue [Unknown]
  - Epileptic aura [Unknown]
  - Fatigue [Unknown]
  - Somnolence [Unknown]

NARRATIVE: CASE EVENT DATE: 20221201
